FAERS Safety Report 18605922 (Version 2)
Quarter: 2020Q4

REPORT INFORMATION
  Report Type: Spontaneous
  Country: US (occurrence: US)
  Receive Date: 20201211
  Receipt Date: 20201228
  Transmission Date: 20210114
  Serious: No
  Sender: FDA-Public Use
  Company Number: US-BIOGEN-2020BI00951670

PATIENT
  Sex: Male

DRUGS (2)
  1. VUMERITY [Suspect]
     Active Substance: DIROXIMEL FUMARATE
     Route: 048
     Dates: start: 20201115, end: 20201207
  2. VUMERITY [Suspect]
     Active Substance: DIROXIMEL FUMARATE
     Indication: MULTIPLE SCLEROSIS
     Route: 065
     Dates: start: 20201109

REACTIONS (7)
  - Abdominal pain upper [Recovered/Resolved]
  - Feeding disorder [Recovered/Resolved]
  - Abdominal pain [Recovered/Resolved]
  - Product dose omission issue [Unknown]
  - Flushing [Unknown]
  - Drug ineffective [Unknown]
  - Decreased appetite [Unknown]
